FAERS Safety Report 5529102-3 (Version None)
Quarter: 2007Q4

REPORT INFORMATION
  Report Type: 
  Country: None (occurrence: None)
  Receive Date: 20071129
  Receipt Date: 20061208
  Transmission Date: 20080405
  Serious: No
  Sender: FDA-Public Use
  Company Number: A0630958A

PATIENT
  Age: 47 Year
  Sex: Female

DRUGS (3)
  1. WELLBUTRIN SR [Suspect]
     Indication: DEPRESSION
     Dosage: 300MG PER DAY
     Route: 048
     Dates: end: 20061101
  2. NORDETTE-21 [Concomitant]
  3. VALTREX [Concomitant]

REACTIONS (3)
  - NOCTURIA [None]
  - POLLAKIURIA [None]
  - URINE FLOW DECREASED [None]
